FAERS Safety Report 16985558 (Version 1)
Quarter: 2019Q4

REPORT INFORMATION
  Report Type: Spontaneous
  Country: PH (occurrence: PH)
  Receive Date: 20191101
  Receipt Date: 20191101
  Transmission Date: 20200122
  Serious: Yes (Other)
  Sender: FDA-Public Use
  Company Number: PH-PFIZER INC-2019466114

PATIENT
  Age: 55 Year
  Sex: Female
  Weight: 55 kg

DRUGS (7)
  1. METHYCOBAL [Concomitant]
     Active Substance: METHYLCOBALAMIN
     Indication: NERVE INJURY
     Dosage: 500 UG, 3X/DAY
     Route: 048
     Dates: start: 20191011
  2. CLAZOL [Concomitant]
     Indication: PERIPHERAL ARTERIAL OCCLUSIVE DISEASE
     Dosage: 50 MG, 2X/DAY
     Route: 048
     Dates: start: 20191011, end: 20191013
  3. REININ [Concomitant]
     Indication: NEURALGIA
     Dosage: 300 MG, ONCE A DAY AT BEDTIME
     Route: 048
     Dates: start: 20191011, end: 20191013
  4. NORGESIC FORTE [Concomitant]
     Active Substance: ASPIRIN\CAFFEINE\ORPHENADRINE CITRATE
     Indication: MUSCLE SPASMS
     Dosage: 1 TAB, 2-3X A DAY
     Route: 048
     Dates: start: 20191011
  5. CELEBREX [Suspect]
     Active Substance: CELECOXIB
     Indication: PAIN
     Dosage: 400 MG, 1X/DAY
     Route: 048
     Dates: start: 20191012, end: 20191013
  6. NORGESIC FORTE [Concomitant]
     Active Substance: ASPIRIN\CAFFEINE\ORPHENADRINE CITRATE
     Indication: PAIN
  7. ROSWIN [Concomitant]
     Indication: HYPERLIPIDAEMIA
     Dosage: 20 MG, 1X/DAY AT BEDTIME
     Route: 048
     Dates: start: 20191027

REACTIONS (5)
  - Hepatic enzyme increased [Not Recovered/Not Resolved]
  - Lipids increased [Not Recovered/Not Resolved]
  - Hyperlipidaemia [Not Recovered/Not Resolved]
  - Chest discomfort [Recovered/Resolved]
  - Hepatic steatosis [Not Recovered/Not Resolved]

NARRATIVE: CASE EVENT DATE: 20191012
